FAERS Safety Report 7540445-4 (Version None)
Quarter: 2011Q2

REPORT INFORMATION
  Report Type: 
  Country: None (occurrence: None)
  Receive Date: 20110610
  Receipt Date: 20110601
  Transmission Date: 20111010
  Serious: Yes (Hospitalization, Other)
  Sender: FDA-Public Use
  Company Number: BR-ASTRAZENECA-2010SE58783

PATIENT
  Age: 59 Year
  Sex: Male
  Weight: 56 kg

DRUGS (3)
  1. METOPROLOL SUCCINATE [Suspect]
     Route: 048
     Dates: start: 20100201
  2. ATACAND [Suspect]
     Indication: HYPERTENSION
     Route: 048
     Dates: start: 20091001
  3. METOPROLOL SUCCINATE [Suspect]
     Indication: HYPERTENSION
     Route: 048
     Dates: start: 20091001, end: 20100201

REACTIONS (3)
  - CORONARY ARTERY OCCLUSION [None]
  - AORTIC OCCLUSION [None]
  - CEREBROVASCULAR ACCIDENT [None]
